FAERS Safety Report 8740493 (Version 2)
Quarter: 2013Q4

REPORT INFORMATION
  Report Type: Spontaneous
  Country: US (occurrence: US)
  Receive Date: 20120823
  Receipt Date: 20131101
  Transmission Date: 20140711
  Serious: No
  Sender: FDA-Public Use
  Company Number: US-009507513-1208USA007886

PATIENT
  Age: 30 Year
  Sex: Female
  Weight: 108.84 kg

DRUGS (2)
  1. IMPLANON [Suspect]
     Indication: CONTRACEPTION
     Dosage: 1 DF, FOR 3 YEARS
     Route: 059
     Dates: start: 20120430
  2. HYDROCHLOROTHIAZIDE [Concomitant]

REACTIONS (1)
  - Menorrhagia [Unknown]
